FAERS Safety Report 10496244 (Version 18)
Quarter: 2025Q4

REPORT INFORMATION
  Report Type: Spontaneous
  Country: CA (occurrence: CA)
  Receive Date: 20141003
  Receipt Date: 20251218
  Transmission Date: 20260118
  Serious: Yes (Hospitalization, Other)
  Sender: MERCK SHARP & DOHME LLC
  Company Number: None

PATIENT
  Age: 78 Year
  Sex: Female

DRUGS (99)
  1. JANUVIA [Suspect]
     Active Substance: SITAGLIPTIN PHOSPHATE
     Indication: Diabetes mellitus
     Dosage: DOSE DESCRIPTION : 100.0 MILLIGRAM, EVERY 1 DAY?DAILY DOSE : 100 MILLIGRAM?REGIMEN DOSE : 6100  M...
     Route: 048
  2. JANUVIA [Suspect]
     Active Substance: SITAGLIPTIN PHOSPHATE
     Indication: Diabetes mellitus
     Route: 048
  3. ZOCOR [Suspect]
     Active Substance: SIMVASTATIN
     Indication: Cerebrovascular accident
     Dosage: DOSE DESCRIPTION : 10 MILLIGRAM 1 EVERY 1 DAYS?DAILY DOSE : 10 MILLIGRAM
     Route: 065
  4. ZOCOR [Suspect]
     Active Substance: SIMVASTATIN
     Indication: Cerebrovascular accident
     Route: 065
  5. BETAMETHASONE DIPROPIONATE [Suspect]
     Active Substance: BETAMETHASONE DIPROPIONATE
     Indication: Psoriasis
     Route: 065
  6. BETAMETHASONE DIPROPIONATE [Suspect]
     Active Substance: BETAMETHASONE DIPROPIONATE
     Indication: Psoriasis
     Route: 065
  7. BETAMETHASONE DIPROPIONATE [Suspect]
     Active Substance: BETAMETHASONE DIPROPIONATE
     Indication: Psoriasis
     Route: 065
  8. ACEBUTOLOL [Suspect]
     Active Substance: ACEBUTOLOL
     Indication: Hypertension
     Route: 065
  9. ALISKIREN [Suspect]
     Active Substance: ALISKIREN
     Indication: Hypertension
     Dosage: DOSE DESCRIPTION : 300 MILLIGRAM, EVERY 1 DAYS?DAILY DOSE : 300 MILLIGRAM?REGIMEN DOSE : 109500  ...
     Route: 065
  10. ALISKIREN HEMIFUMARATE [Suspect]
     Active Substance: ALISKIREN HEMIFUMARATE
     Indication: Hypertension
     Dosage: DOSE DESCRIPTION : 300 MILLIGRAM, 1 EVERY 1 DAYS?DAILY DOSE : 300 MILLIGRAM
     Route: 065
  11. SITAGLIPTIN [Suspect]
     Active Substance: SITAGLIPTIN
     Indication: Diabetes mellitus
     Dosage: DOSE DESCRIPTION : 100 MILLIGRAM, 1 EVERY 1 DAYS?DAILY DOSE : 100 MILLIGRAM
     Route: 065
  12. RISEDRONIC ACID [Suspect]
     Active Substance: RISEDRONIC ACID
     Indication: Osteoporosis
     Dosage: DOSE DESCRIPTION : 35 MILLIGRAM, QW?DAILY DOSE : 5.005 MILLIGRAM?REGIMEN DOSE : 35  MILLIGRAM
     Route: 065
  13. RISEDRONIC ACID [Suspect]
     Active Substance: RISEDRONIC ACID
     Indication: Osteoporosis
     Route: 065
  14. AMLODIPINE [Suspect]
     Active Substance: AMLODIPINE BESYLATE
     Indication: Hypertension
     Dosage: DOSE DESCRIPTION : 10 MILLIGRAM, 1 EVERY 1 DAYS?DAILY DOSE : 10 MILLIGRAM
     Route: 065
  15. AMLODIPINE [Suspect]
     Active Substance: AMLODIPINE BESYLATE
     Indication: Hypertension
     Dosage: DOSE DESCRIPTION : UNK
     Route: 065
  16. AMLODIPINE [Suspect]
     Active Substance: AMLODIPINE BESYLATE
     Indication: Hypertension
     Dosage: DOSE DESCRIPTION : UNK
     Route: 065
  17. AMLODIPINE [Suspect]
     Active Substance: AMLODIPINE BESYLATE
     Indication: Hypertension
     Dosage: DOSE DESCRIPTION : UNK
     Route: 065
  18. AMLODIPINE [Suspect]
     Active Substance: AMLODIPINE BESYLATE
     Indication: Hypertension
     Dosage: DOSE DESCRIPTION : 10 MILLIGRAM, 1 EVERY 1 DAYS?DAILY DOSE : 10 MILLIGRAM
     Route: 065
  19. PRAMIPEXOLE [Suspect]
     Active Substance: PRAMIPEXOLE
     Indication: Restless legs syndrome
     Dosage: DOSE DESCRIPTION : 0.25 MILLIGRAM, 1 EVERY 1 DAYS?DAILY DOSE : 0.25 MILLIGRAM
     Route: 065
  20. AMLODIPINE BESYLATE [Suspect]
     Active Substance: AMLODIPINE BESYLATE
     Indication: Hypertension
     Dosage: DOSE DESCRIPTION : 10.0 MILLIGRAM, EVERY 1 DAY?DAILY DOSE : 10 MILLIGRAM
     Route: 065
  21. GLICLAZIDE [Suspect]
     Active Substance: GLICLAZIDE
     Indication: Diabetes mellitus
     Dosage: DOSE DESCRIPTION : 30 MG, BID (2 EVERY 1 DAYS, 1 EVERY 12 HOURS)?DAILY DOSE : 60 MILLIGRAM
     Route: 065
  22. GLICLAZIDE [Suspect]
     Active Substance: GLICLAZIDE
     Indication: Diabetes mellitus
     Dosage: DOSE DESCRIPTION : 60 MG, QD (1 EVERY 1 DAYS)?DAILY DOSE : 60 MILLIGRAM
     Route: 065
  23. GLICLAZIDE [Suspect]
     Active Substance: GLICLAZIDE
     Indication: Diabetes mellitus
     Route: 065
  24. BETAMETHASONE DIPROPIONATE\CALCIPOTRIENE MONOHYDRATE [Suspect]
     Active Substance: BETAMETHASONE DIPROPIONATE\CALCIPOTRIENE MONOHYDRATE
     Indication: Psoriasis
     Route: 065
  25. HYDRALAZINE [Suspect]
     Active Substance: HYDRALAZINE HYDROCHLORIDE
     Indication: Hypertension
     Dosage: DOSE DESCRIPTION : UNK
     Route: 065
  26. LABETALOL [Suspect]
     Active Substance: LABETALOL
     Indication: Hypertension
     Dosage: DOSE DESCRIPTION : 200 MG, BID (2 EVERY 1 DAYS)?DAILY DOSE : 400 MILLIGRAM?REGIMEN DOSE : 85200  ...
     Route: 065
  27. LABETALOL [Suspect]
     Active Substance: LABETALOL
     Indication: Hypertension
     Dosage: DOSE DESCRIPTION : 500 MILLIGRAM, 2 EVERY 1 DAY?DAILY DOSE : 1000 MILLIGRAM
     Route: 065
  28. LABETALOL HYDROCHLORIDE [Suspect]
     Active Substance: LABETALOL HYDROCHLORIDE
     Indication: Product used for unknown indication
     Dosage: DOSE DESCRIPTION : 200 MILLIGRAM, 2 EVERY 1 DAYS?DAILY DOSE : 400 MILLIGRAM
     Route: 065
  29. LABETALOL HYDROCHLORIDE [Suspect]
     Active Substance: LABETALOL HYDROCHLORIDE
     Indication: Product used for unknown indication
     Dosage: DOSE DESCRIPTION : 500 MILLIGRAM, 2 EVERY 1 DAYS?DAILY DOSE : 1000 MILLIGRAM
     Route: 065
  30. FUROSEMIDE [Suspect]
     Active Substance: FUROSEMIDE
     Indication: Oedema peripheral
     Dosage: DOSE DESCRIPTION : 40.0 MILLIGRAM, EVERY 1 DAY?DAILY DOSE : 40 MILLIGRAM?REGIMEN DOSE : 7320  MIL...
     Route: 065
  31. METFORMIN [Suspect]
     Active Substance: METFORMIN HYDROCHLORIDE
     Indication: Diabetes mellitus
     Dosage: DOSE DESCRIPTION : 500.0 MILLIGRAM, BID (2 EVERY 1 DAY)?DAILY DOSE : 1000 MILLIGRAM
     Route: 065
  32. METFORMIN [Suspect]
     Active Substance: METFORMIN HYDROCHLORIDE
     Indication: Diabetes mellitus
     Dosage: DOSE DESCRIPTION : 500.0 MILLIGRAM, BID (2 EVERY 1 DAY)?DAILY DOSE : 1000 MILLIGRAM
     Route: 065
  33. VALSARTAN [Suspect]
     Active Substance: VALSARTAN
     Indication: Hypertension
     Dosage: DOSE DESCRIPTION : 320 MG, 1 EVERY 1 DAYS?DAILY DOSE : 320 MILLIGRAM?REGIMEN DOSE : 68160  MILLIGRAM
     Route: 065
  34. VALSARTAN [Suspect]
     Active Substance: VALSARTAN
     Indication: Hypertension
     Dosage: DOSE DESCRIPTION : UNK
     Route: 065
  35. BETAMETHASONE VALERATE [Suspect]
     Active Substance: BETAMETHASONE VALERATE
     Indication: Psoriasis
     Dosage: DOSE DESCRIPTION : UNK
     Route: 065
  36. BETAMETHASONE VALERATE [Suspect]
     Active Substance: BETAMETHASONE VALERATE
     Indication: Psoriasis
     Dosage: DOSE DESCRIPTION : UNK
     Route: 065
  37. THEO-DUR [Suspect]
     Active Substance: THEOPHYLLINE ANHYDROUS
     Indication: Hypertension
     Dosage: DOSE DESCRIPTION : UNK
     Route: 065
  38. THEO-DUR [Suspect]
     Active Substance: THEOPHYLLINE ANHYDROUS
     Indication: Hypertension
     Dosage: DOSE DESCRIPTION : UNK
     Route: 065
  39. ALBUTEROL [Suspect]
     Active Substance: ALBUTEROL
     Indication: Product used for unknown indication
     Dosage: DOSE DESCRIPTION : UNK
     Route: 065
  40. RISEDRONATE SODIUM [Suspect]
     Active Substance: RISEDRONATE SODIUM
     Indication: Osteoporosis
     Dosage: DOSE DESCRIPTION : 35.0 MILLIGRAM, QW (1 EVERY 1 WEEK)?DAILY DOSE : 5.005 MILLIGRAM?REGIMEN DOSE ...
     Route: 065
  41. RISEDRONATE SODIUM [Suspect]
     Active Substance: RISEDRONATE SODIUM
     Indication: Osteoporosis
     Dosage: DOSE DESCRIPTION : 1 DOSAGE FORM, 1 EVERY 1 WEEKS?DAILY DOSE : 1 DOSAGE FORM
     Route: 065
  42. TRAMADOL [Suspect]
     Active Substance: TRAMADOL
     Indication: Pain
     Dosage: DOSE DESCRIPTION : UNK
     Route: 065
  43. BETAMETHASONE [Suspect]
     Active Substance: BETAMETHASONE
     Indication: Psoriasis
     Dosage: DOSE DESCRIPTION : UNK
     Route: 065
  44. VITAMIN B12 [Suspect]
     Active Substance: CYANOCOBALAMIN
     Indication: Product used for unknown indication
     Route: 065
  45. VITAMIN B12 [Suspect]
     Active Substance: CYANOCOBALAMIN
     Indication: Product used for unknown indication
     Route: 065
  46. ASPIRIN [Concomitant]
     Active Substance: ASPIRIN
     Indication: Cerebrovascular accident
     Dosage: DOSE DESCRIPTION : 81.0 MILLIGRAM, EVERY 1 DAY?DAILY DOSE : 81 MILLIGRAM?REGIMEN DOSE : 22194  MI...
     Route: 065
  47. ASPIRIN [Concomitant]
     Active Substance: ASPIRIN
     Indication: Cerebrovascular accident
     Route: 048
  48. ALLOPURINOL [Concomitant]
     Active Substance: ALLOPURINOL
     Indication: Gout
     Dosage: DOSE DESCRIPTION : 250.0 MILLIGRAM, EVERY 1 DAY?DAILY DOSE : 250 MILLIGRAM
     Route: 065
  49. ALLOPURINOL [Concomitant]
     Active Substance: ALLOPURINOL
     Indication: Gout
     Dosage: DOSE DESCRIPTION : 200 MILLIGRAM, EVERY 1 DAY?DAILY DOSE : 200 MILLIGRAM
     Route: 065
  50. ALLOPURINOL [Concomitant]
     Active Substance: ALLOPURINOL
     Indication: Gout
     Dosage: DOSE DESCRIPTION : 100 MILLIGRAM, EVERY 1 DAY?DAILY DOSE : 100 MILLIGRAM
     Route: 065
  51. ALLOPURINOL [Concomitant]
     Active Substance: ALLOPURINOL
     Indication: Gout
     Dosage: DOSE DESCRIPTION : 200 MILLIGRAM, EVERY 1 DAY?DAILY DOSE : 200 MILLIGRAM
     Route: 065
  52. ALLOPURINOL [Concomitant]
     Active Substance: ALLOPURINOL
     Indication: Gout
     Route: 048
  53. LEVOTHYROXINE SODIUM [Concomitant]
     Active Substance: LEVOTHYROXINE SODIUM
     Indication: Hypothyroidism
     Dosage: DOSE DESCRIPTION : 0.088 MILLIGRAM, QD (1 EVERY 1 DAY)?DAILY DOSE : 0.088 MILLIGRAM
     Route: 065
  54. SIMVASTATIN [Concomitant]
     Active Substance: SIMVASTATIN
     Indication: Product used for unknown indication
     Dosage: DOSE DESCRIPTION : 10 MILLIGRAM, QD (1 EVERY 1 DAY)?DAILY DOSE : 10 MILLIGRAM
     Route: 065
  55. CALCIPOTRIENE [Concomitant]
     Active Substance: CALCIPOTRIENE
     Indication: Psoriasis
     Dosage: DOSE DESCRIPTION : UNK, 1 EVERY 1 DAY
     Route: 065
  56. PANTOPRAZOLE [Concomitant]
     Active Substance: PANTOPRAZOLE
     Indication: Product used for unknown indication
     Dosage: DOSE DESCRIPTION : 40.0 MILLIGRAM, EVERY 1 DAY?DAILY DOSE : 40 MILLIGRAM
     Route: 065
  57. FLUTICASONE [Concomitant]
     Active Substance: FLUTICASONE
     Indication: Product used for unknown indication
     Dosage: DOSE DESCRIPTION : 2 DOSAGE FORM, 2 EVERY 1 DAYS?DAILY DOSE : 4 DOSAGE FORM
     Route: 065
  58. FLUTICASONE [Concomitant]
     Active Substance: FLUTICASONE
     Indication: Product used for unknown indication
     Dosage: DOSE DESCRIPTION : UNK
     Route: 065
  59. PRAMIPEXOLE DIHYDROCHLORIDE [Concomitant]
     Active Substance: PRAMIPEXOLE DIHYDROCHLORIDE
     Indication: Restless legs syndrome
     Dosage: DOSE DESCRIPTION : 0.25 MILLIGRAM, QD (1 EVERY 1 DAY)?DAILY DOSE : 0.25 MILLIGRAM
     Route: 065
  60. PRAMIPEXOLE DIHYDROCHLORIDE [Concomitant]
     Active Substance: PRAMIPEXOLE DIHYDROCHLORIDE
     Indication: Restless legs syndrome
     Route: 065
  61. METHOCARBAMOL [Suspect]
     Active Substance: METHOCARBAMOL
     Indication: Hypertension
     Dosage: DOSE DESCRIPTION : 400 MILLIGRAM, BID (2 EVERY 1 DAY, 1 EVERY 12 HOURS)?DAILY DOSE : 800 MILLIGRAM
     Route: 065
  62. METHOCARBAMOL [Suspect]
     Active Substance: METHOCARBAMOL
     Indication: Hypertension
     Dosage: DOSE DESCRIPTION : 200 MILLIGRAM 1 EVERY 1 DAY?DAILY DOSE : 200 MILLIGRAM
     Route: 065
  63. METHOCARBAMOL [Suspect]
     Active Substance: METHOCARBAMOL
     Indication: Hypertension
     Route: 065
  64. ACEBUTOLOL HYDROCHLORIDE [Concomitant]
     Active Substance: ACEBUTOLOL HYDROCHLORIDE
     Indication: Hypertension
     Dosage: DOSE DESCRIPTION : UNK
     Route: 065
  65. RANITIDINE [Concomitant]
     Active Substance: RANITIDINE
     Indication: Dyspepsia
     Dosage: DOSE DESCRIPTION : 150 MILLIGRAM
     Route: 065
  66. RANITIDINE [Concomitant]
     Active Substance: RANITIDINE
     Indication: Dyspepsia
     Dosage: DOSE DESCRIPTION : UNK
     Route: 065
  67. CYANOCOBALAMIN [Concomitant]
     Active Substance: CYANOCOBALAMIN
     Indication: Product used for unknown indication
     Dosage: DOSE DESCRIPTION : UNK
     Route: 065
  68. CALCIUM CARBONATE [Concomitant]
     Active Substance: CALCIUM CARBONATE
     Indication: Osteoporosis
     Dosage: DOSE DESCRIPTION : UNK
     Route: 065
  69. CALCIUM CARBONATE [Concomitant]
     Active Substance: CALCIUM CARBONATE
     Indication: Osteoporosis
     Dosage: DOSE DESCRIPTION : 1 DOSAGE FORM, EVERY 1 DAYS?DAILY DOSE : 1 DOSAGE FORM
     Route: 065
  70. CALCIUM CARBONATE [Concomitant]
     Active Substance: CALCIUM CARBONATE
     Indication: Osteoporosis
     Dosage: DOSE DESCRIPTION : UNK
     Route: 065
  71. TRAMADOL HYDROCHLORIDE [Concomitant]
     Active Substance: TRAMADOL HYDROCHLORIDE
     Indication: Pain
     Route: 065
  72. ACETAMINOPHEN [Concomitant]
     Active Substance: ACETAMINOPHEN
     Indication: Pain
     Dosage: DOSE DESCRIPTION : 325 MILLIGRAM, 2 EVERY 1 DAYS?DAILY DOSE : 650 MILLIGRAM
     Route: 065
  73. IBUPROFEN [Concomitant]
     Active Substance: IBUPROFEN
     Indication: Product used for unknown indication
     Route: 065
  74. IBUPROFEN [Concomitant]
     Active Substance: IBUPROFEN
     Indication: Product used for unknown indication
     Route: 065
  75. IBUPROFEN\METHOCARBAMOL [Concomitant]
     Active Substance: IBUPROFEN\METHOCARBAMOL
     Route: 065
  76. HERBALS [Concomitant]
     Active Substance: HERBALS
     Indication: Product used for unknown indication
     Dosage: DOSE DESCRIPTION : UNK
     Route: 065
  77. HERBALS [Concomitant]
     Active Substance: HERBALS
     Indication: Product used for unknown indication
     Dosage: DOSE DESCRIPTION : UNK
     Route: 065
  78. ERGOCALCIFEROL [Concomitant]
     Active Substance: ERGOCALCIFEROL
     Indication: Osteoporosis
     Dosage: DOSE DESCRIPTION : UNK
     Route: 065
  79. ERGOCALCIFEROL [Concomitant]
     Active Substance: ERGOCALCIFEROL
     Indication: Osteoporosis
     Dosage: DOSE DESCRIPTION : FREQUENCY: EVERY 1 DAY
     Route: 065
  80. ERGOCALCIFEROL [Concomitant]
     Active Substance: ERGOCALCIFEROL
     Indication: Osteoporosis
     Dosage: DOSE DESCRIPTION : 1 DOSAGE FORM, 1 EVERY 1 DAYS?DAILY DOSE : 1 DOSAGE FORM
     Route: 065
  81. ERGOCALCIFEROL [Concomitant]
     Active Substance: ERGOCALCIFEROL
     Indication: Osteoporosis
     Dosage: DOSE DESCRIPTION : UNK
     Route: 065
  82. ERGOCALCIFEROL [Concomitant]
     Active Substance: ERGOCALCIFEROL
     Indication: Osteoporosis
     Dosage: DOSE DESCRIPTION : FREQUENCY: EVERY 1 DAY
     Route: 065
  83. ACETAMINOPHEN\METHOCARBAMOL [Concomitant]
     Active Substance: ACETAMINOPHEN\METHOCARBAMOL
     Indication: Back pain
     Dosage: DOSE DESCRIPTION : UNK, BID
     Route: 065
  84. ACETAMINOPHEN\METHOCARBAMOL [Concomitant]
     Active Substance: ACETAMINOPHEN\METHOCARBAMOL
     Indication: Back pain
     Dosage: DOSE DESCRIPTION : UNK, BID
     Route: 065
  85. HERBALS\PLANTAGO INDICA WHOLE [Concomitant]
     Active Substance: HERBALS\PLANTAGO INDICA WHOLE
     Indication: Constipation
     Dosage: DOSE DESCRIPTION : UNK, BID (2 EVERY 1 DAY)
     Route: 065
  86. HERBALS\PLANTAGO INDICA WHOLE [Concomitant]
     Active Substance: HERBALS\PLANTAGO INDICA WHOLE
     Indication: Constipation
     Dosage: DOSE DESCRIPTION : UNK, BID (2 EVERY 1 DAY)
     Route: 065
  87. VITAMIN D NOS [Concomitant]
     Active Substance: CHOLECALCIFEROL\ERGOCALCIFEROL
     Indication: Product used for unknown indication
     Dosage: DOSE DESCRIPTION : UNK
     Route: 065
  88. VITAMIN D NOS [Concomitant]
     Active Substance: CHOLECALCIFEROL\ERGOCALCIFEROL
     Indication: Product used for unknown indication
     Dosage: DOSE DESCRIPTION : UNK
     Route: 065
  89. SITAGLIPTIN PHOSPHATE [Concomitant]
     Active Substance: SITAGLIPTIN PHOSPHATE
     Indication: Product used for unknown indication
     Route: 048
  90. SITAGLIPTIN PHOSPHATE [Concomitant]
     Active Substance: SITAGLIPTIN PHOSPHATE
     Indication: Product used for unknown indication
     Dosage: 100 MG, QD
     Route: 048
  91. HERBALS\PLANTAGO OVATA LEAF [Concomitant]
     Active Substance: HERBALS\PLANTAGO OVATA LEAF
     Indication: Product used for unknown indication
     Dosage: DOSE DESCRIPTION : UNK
     Route: 065
  92. HERBALS\PLANTAGO OVATA LEAF [Concomitant]
     Active Substance: HERBALS\PLANTAGO OVATA LEAF
     Indication: Product used for unknown indication
     Dosage: DOSE DESCRIPTION : UNK
     Route: 065
  93. ALBUTEROL SULFATE [Concomitant]
     Active Substance: ALBUTEROL SULFATE
     Route: 065
  94. ERGOCALCIFEROL [Concomitant]
     Active Substance: ERGOCALCIFEROL
     Indication: Osteoporosis
     Route: 065
  95. CLOPIDOGREL BISULFATE [Suspect]
     Active Substance: CLOPIDOGREL BISULFATE
     Indication: Anticoagulant therapy
     Route: 065
  96. APIXABAN [Suspect]
     Active Substance: APIXABAN
     Indication: Anticoagulant therapy
     Route: 048
  97. TRAMADOL [Suspect]
     Active Substance: TRAMADOL
     Indication: Pain
     Route: 065
  98. ASPIRIN [Suspect]
     Active Substance: ASPIRIN
     Indication: Cerebrovascular accident
     Dosage: NOT SPECIFIED
     Route: 065
  99. ASPIRIN [Suspect]
     Active Substance: ASPIRIN
     Indication: Cerebrovascular accident
     Route: 048

REACTIONS (20)
  - Abdominal discomfort [Unknown]
  - Diabetes mellitus inadequate control [Unknown]
  - Amnesia [Unknown]
  - Cognitive disorder [Unknown]
  - Exercise tolerance decreased [Unknown]
  - Mobility decreased [Unknown]
  - Multiple drug therapy [Unknown]
  - Treatment noncompliance [Unknown]
  - Drug ineffective [Unknown]
  - Blood pressure inadequately controlled [Unknown]
  - Hypertension [Unknown]
  - Hypertension [Unknown]
  - Depressed mood [Unknown]
  - Peripheral swelling [Unknown]
  - Oedema peripheral [Unknown]
  - Contusion [Unknown]
  - Medication error [Unknown]
  - Product use issue [Unknown]
  - Treatment noncompliance [Unknown]
  - Off label use [Unknown]
